FAERS Safety Report 5224126-8 (Version None)
Quarter: 2007Q1

REPORT INFORMATION
  Report Type: 
  Country: None (occurrence: None)
  Receive Date: 20070126
  Receipt Date: 20070112
  Transmission Date: 20070707
  Serious: Yes (Death, Hospitalization)
  Sender: FDA-Public Use
  Company Number: 2006001958

PATIENT
  Age: 54 Year
  Sex: Male

DRUGS (10)
  1. ERLOTINIB (TABLET) [Suspect]
     Indication: OESOPHAGEAL CARCINOMA
     Dosage: 150 MG (QD), ORAL
     Route: 048
     Dates: start: 20060921, end: 20060929
  2. BEVACIZUMAB (INJECTION FOR INFUSION) [Suspect]
     Dosage: 840 MG, INTRAVENOUS
     Route: 042
     Dates: start: 20060921, end: 20060929
  3. ATENOLOL [Concomitant]
  4. DURAGESIC-100 [Concomitant]
  5. PINEX (PARACETAMOL) [Concomitant]
  6. AMLODIPINE [Concomitant]
  7. CITALOPRAM HYDROBROMIDE [Concomitant]
  8. PANTOPRAZOLE SODIUM [Concomitant]
  9. PREDNISOLONE [Concomitant]
  10. EMPERAL (METOCLOPRAMIDE HYDROCHLORIDE) [Concomitant]

REACTIONS (11)
  - ABNORMAL FAECES [None]
  - DECUBITUS ULCER [None]
  - GASTRIC HAEMORRHAGE [None]
  - HAEMORRHAGIC DISORDER [None]
  - HEPATIC FAILURE [None]
  - ILL-DEFINED DISORDER [None]
  - LABORATORY TEST ABNORMAL [None]
  - MALIGNANT NEOPLASM PROGRESSION [None]
  - METASTASES TO LIVER [None]
  - NERVOUS SYSTEM DISORDER [None]
  - THROMBOCYTOPENIA [None]
